FAERS Safety Report 6269477-3 (Version None)
Quarter: 2009Q3

REPORT INFORMATION
  Report Type: 
  Country: None (occurrence: None)
  Receive Date: 20090715
  Receipt Date: 20081120
  Transmission Date: 20100115
  Serious: No
  Sender: FDA-Public Use
  Company Number: US-TYCO HEALTHCARE/MALLINCKRODT-T200801998

PATIENT

DRUGS (7)
  1. OXYCODONE [Suspect]
     Indication: HEADACHE
     Dosage: 5 MG, 1-2 TABS ONCE DAILY
     Route: 048
     Dates: start: 20080301
  2. OXYCODONE [Interacting]
     Dosage: 10 MG (2 TABS), EVERY 4 HOURS AS NEEDED
     Route: 048
  3. OXYCODONE [Interacting]
     Dosage: 6 - 8 TABLETS WITHIN 2 HOURS
     Route: 048
  4. CITALOPRAM HYDROBROMIDE [Interacting]
     Indication: DEPRESSION
     Dosage: 15 MG, QD
     Route: 048
     Dates: start: 20081001, end: 20081101
  5. NEURONTIN [Concomitant]
     Indication: HEADACHE
     Dosage: 1200 MG, TID
     Route: 048
  6. COLACE [Concomitant]
     Dosage: UNK
     Route: 048
  7. MORPHINE SULFATE [Concomitant]
     Indication: HEADACHE
     Dosage: 60 MG, BID
     Route: 048

REACTIONS (4)
  - ARTHRALGIA [None]
  - INAPPROPRIATE SCHEDULE OF DRUG ADMINISTRATION [None]
  - OEDEMA PERIPHERAL [None]
  - VASODILATATION [None]
